FAERS Safety Report 7910715-6 (Version None)
Quarter: 2011Q4

REPORT INFORMATION
  Report Type: 
  Country: None (occurrence: None)
  Receive Date: 20111111
  Receipt Date: 20111024
  Transmission Date: 20120403
  Serious: Yes (Hospitalization, Other)
  Sender: FDA-Public Use
  Company Number: PHHY2011JP86858

PATIENT
  Age: 57 Year
  Sex: Male

DRUGS (4)
  1. TASIGNA [Suspect]
     Indication: CHRONIC MYELOID LEUKAEMIA
     Dosage: 600 MG, DAILY
     Route: 048
     Dates: start: 20110818
  2. PROMAC [Concomitant]
     Dosage: 1 G, DAILY
     Route: 048
     Dates: start: 20110915
  3. TASIGNA [Suspect]
     Dosage: 600 MG, QD
     Route: 048
     Dates: start: 20110928
  4. LANSOPRAZOLE [Concomitant]
     Dosage: 30 MG, DAILY
     Route: 048
     Dates: start: 20110815

REACTIONS (4)
  - GAIT DISTURBANCE [None]
  - PLATELET COUNT DECREASED [None]
  - SUBDURAL HAEMATOMA [None]
  - BLOOD ALKALINE PHOSPHATASE INCREASED [None]
